FAERS Safety Report 21165870 (Version 1)
Quarter: 2022Q3

REPORT INFORMATION
  Report Type: Spontaneous
  Country: US (occurrence: US)
  Receive Date: 20220803
  Receipt Date: 20220803
  Transmission Date: 20221026
  Serious: No
  Sender: FDA-Public Use
  Company Number: US-MICRO LABS LIMITED-ML2022-03335

PATIENT
  Age: 69 Year
  Sex: Male
  Weight: 160 kg

DRUGS (1)
  1. DORZOLAMIDE\TIMOLOL [Suspect]
     Active Substance: DORZOLAMIDE\TIMOLOL
     Indication: Glaucoma
     Dosage: ONE DROP IN EACH EYE, STRENGTH: 22.3 MG/6.8 MG PER ML
     Route: 047

REACTIONS (3)
  - Allergic reaction to excipient [Unknown]
  - Eye irritation [Unknown]
  - Dermatitis contact [Unknown]
